FAERS Safety Report 19651262 (Version 11)
Quarter: 2023Q2

REPORT INFORMATION
  Report Type: Report from Study
  Country: DE (occurrence: None)
  Receive Date: 20210803
  Receipt Date: 20230626
  Transmission Date: 20230722
  Serious: Yes (Hospitalization)
  Sender: FDA-Public Use
  Company Number: DE-ROCHE-2878623

PATIENT
  Age: 53 Year
  Sex: Female
  Weight: 64 kg

DRUGS (15)
  1. ATEZOLIZUMAB [Suspect]
     Active Substance: ATEZOLIZUMAB
     Indication: Triple negative breast cancer
     Dosage: DATE OF MOST RECENT DOSE OF ATEZOLIZUMAB PRIOR TO SAE ONSET: 17/JUN/2021 AND 01/JUL/2021
     Route: 042
     Dates: start: 20210617
  2. PACLITAXEL [Suspect]
     Active Substance: PACLITAXEL
     Indication: Triple negative breast cancer
     Dosage: DATE OF MOST RECENT DOSE OF PACLITAXEL PRIOR TO SAE ONSET: 15/JUL/2021
     Route: 042
     Dates: start: 20210701
  3. CARBOPLATIN [Suspect]
     Active Substance: CARBOPLATIN
     Indication: Triple negative breast cancer
     Dosage: DATE OF MOST RECENT DOSE OF CARBOPLATIN PRIOR TO SAE ONSET: 15/JUL/2021
     Route: 042
     Dates: start: 20210701
  4. UNACID [Concomitant]
     Dates: start: 20210420, end: 20210430
  5. VITAMIN B COMPLEX [Concomitant]
     Active Substance: CYANOCOBALAMIN\DEXPANTHENOL\NIACINAMIDE\PYRIDOXINE HYDROCHLORIDE\RIBOFLAVIN 5^-PHOSPHATE SODIUM\THIA
     Dates: start: 20210524
  6. MELATONIN [Concomitant]
     Active Substance: MELATONIN
     Dates: start: 20210524, end: 20210624
  7. ONDANSETRON [Concomitant]
     Active Substance: ONDANSETRON
     Dates: start: 20210701, end: 20210703
  8. IBUPROFEN [Concomitant]
     Active Substance: IBUPROFEN
     Dates: start: 20210702, end: 20210702
  9. FILGRASTIM [Concomitant]
     Active Substance: FILGRASTIM
     Dosage: 30 MIO IE
     Dates: start: 20210710, end: 20210710
  10. FILGRASTIM [Concomitant]
     Active Substance: FILGRASTIM
     Dosage: 30 MIO IE
     Dates: start: 20210718, end: 20210718
  11. MICROKLIST [Concomitant]
     Dates: start: 20210703
  12. KAMISTAD (GERMANY) [Concomitant]
     Dates: start: 20210708
  13. PANTOPRAZOLE [Concomitant]
     Active Substance: PANTOPRAZOLE
  14. ZOFRAN [Concomitant]
     Active Substance: ONDANSETRON HYDROCHLORIDE
  15. DEXAMETHASONE [Concomitant]
     Active Substance: DEXAMETHASONE

REACTIONS (2)
  - Febrile infection [Recovered/Resolved]
  - Drug hypersensitivity [Recovered/Resolved]

NARRATIVE: CASE EVENT DATE: 20210715
